FAERS Safety Report 10600282 (Version 1)
Quarter: 2014Q4

REPORT INFORMATION
  Report Type: Other
  Country: IT (occurrence: IT)
  Receive Date: 20141123
  Receipt Date: 20141123
  Transmission Date: 20150529
  Serious: Yes (Life-Threatening, Other)
  Sender: FDA-Public Use
  Company Number: IT-MYLANLABS-2014M1010862

PATIENT

DRUGS (1)
  1. CIPROFLOXACIN. [Suspect]
     Active Substance: CIPROFLOXACIN
     Indication: DIARRHOEA INFECTIOUS
     Dosage: UNK
     Route: 048
     Dates: start: 20131220, end: 20131221

REACTIONS (7)
  - Insomnia [Recovering/Resolving]
  - Peripheral sensory neuropathy [Recovering/Resolving]
  - Panic attack [Recovering/Resolving]
  - Tachycardia [Recovering/Resolving]
  - Depression [Recovering/Resolving]
  - Malaise [Recovering/Resolving]
  - Tendon pain [Recovering/Resolving]

NARRATIVE: CASE EVENT DATE: 20131220
